FAERS Safety Report 9011557 (Version 2)
Quarter: 2013Q1

REPORT INFORMATION
  Report Type: Spontaneous
  Country: IT (occurrence: IT)
  Receive Date: 20130108
  Receipt Date: 20130128
  Transmission Date: 20140127
  Serious: Yes (Other)
  Sender: FDA-Public Use
  Company Number: IT-PFIZER INC-2013006915

PATIENT
  Age: 58 Year
  Sex: Female

DRUGS (1)
  1. ARACYTIN [Suspect]
     Indication: CHEMOTHERAPY
     Dosage: 5070 MG, ALTERNATE DAY
     Route: 042
     Dates: start: 20121129, end: 20121203

REACTIONS (1)
  - Encephalitis [Recovered/Resolved]
